FAERS Safety Report 20743185 (Version 5)
Quarter: 2022Q3

REPORT INFORMATION
  Report Type: Report from Study
  Country: US (occurrence: US)
  Receive Date: 20220425
  Receipt Date: 20220727
  Transmission Date: 20221026
  Serious: No
  Sender: FDA-Public Use
  Company Number: US-NOVARTISTESTPH-NVSC2022US094101

PATIENT
  Sex: Female

DRUGS (1)
  1. KISQALI [Suspect]
     Active Substance: RIBOCICLIB
     Indication: Breast cancer
     Dosage: 600 MG, QD
     Route: 048
     Dates: start: 20220318

REACTIONS (13)
  - Pain in extremity [Unknown]
  - Muscular weakness [Unknown]
  - Psychomotor hyperactivity [Unknown]
  - Tumour marker decreased [Unknown]
  - Gait disturbance [Recovering/Resolving]
  - Abdominal discomfort [Unknown]
  - Nausea [Unknown]
  - Dizziness [Unknown]
  - Dyspnoea [Unknown]
  - Peripheral swelling [Unknown]
  - Ear discomfort [Unknown]
  - Gingival swelling [Unknown]
  - Taste disorder [Unknown]
